FAERS Safety Report 17332805 (Version 4)
Quarter: 2025Q2

REPORT INFORMATION
  Report Type: Spontaneous
  Country: FR (occurrence: FR)
  Receive Date: 20200128
  Receipt Date: 20250605
  Transmission Date: 20250717
  Serious: Yes (Other)
  Sender: BIOGEN
  Company Number: FR-BIOGEN-2020BI00830274

PATIENT
  Age: 37 Year
  Sex: Female
  Weight: 57 kg

DRUGS (1)
  1. TYSABRI [Suspect]
     Active Substance: NATALIZUMAB
     Indication: Product used for unknown indication
     Route: 050

REACTIONS (1)
  - Dengue fever [Recovered/Resolved]

NARRATIVE: CASE EVENT DATE: 20200105
